FAERS Safety Report 21281489 (Version 3)
Quarter: 2023Q2

REPORT INFORMATION
  Report Type: Spontaneous
  Country: US (occurrence: US)
  Receive Date: 20220901
  Receipt Date: 20230522
  Transmission Date: 20230722
  Serious: Yes (Other)
  Sender: FDA-Public Use
  Company Number: US-ABBVIE-22K-163-4481906-00

PATIENT
  Age: 57 Year
  Sex: Female

DRUGS (3)
  1. HUMIRA [Suspect]
     Active Substance: ADALIMUMAB
     Indication: Product used for unknown indication
     Route: 058
     Dates: start: 20210201
  2. TYMLOS [Suspect]
     Active Substance: ABALOPARATIDE
     Indication: Osteoporosis
     Dosage: DOSE REDUCED
     Route: 058
     Dates: start: 20220401
  3. TYMLOS [Suspect]
     Active Substance: ABALOPARATIDE
     Indication: Osteoporosis
     Route: 058

REACTIONS (13)
  - Deafness bilateral [Not Recovered/Not Resolved]
  - Raynaud^s phenomenon [Unknown]
  - Brain fog [Unknown]
  - Product dose omission issue [Unknown]
  - Intentional product misuse [Unknown]
  - Visual impairment [Unknown]
  - Thirst [Unknown]
  - Staphylococcal infection [Unknown]
  - Back pain [Unknown]
  - Headache [Unknown]
  - Vomiting [Unknown]
  - Rash [Unknown]
  - Ear congestion [Unknown]

NARRATIVE: CASE EVENT DATE: 20210301
